FAERS Safety Report 21783514 (Version 9)
Quarter: 2025Q3

REPORT INFORMATION
  Report Type: Spontaneous
  Country: US (occurrence: US)
  Receive Date: 20221227
  Receipt Date: 20250917
  Transmission Date: 20251021
  Serious: Yes (Other)
  Sender: PFIZER
  Company Number: US-PFIZER INC-202201380839

PATIENT
  Age: 69 Year
  Sex: Female
  Weight: 88.435 kg

DRUGS (2)
  1. XELJANZ [Suspect]
     Active Substance: TOFACITINIB CITRATE
     Indication: Osteoarthritis
     Dosage: 5 MG, 2X/DAY
     Route: 048
     Dates: start: 202303
  2. XELJANZ [Suspect]
     Active Substance: TOFACITINIB CITRATE
     Indication: Psoriatic arthropathy
     Dosage: 5 MG, 1X/DAY
     Route: 048

REACTIONS (7)
  - Gait disturbance [Unknown]
  - Illness [Unknown]
  - Cardiac disorder [Unknown]
  - Immune system disorder [Unknown]
  - Cough [Unknown]
  - Pruritus [Unknown]
  - Off label use [Unknown]
